FAERS Safety Report 22191123 (Version 5)
Quarter: 2023Q2

REPORT INFORMATION
  Report Type: Spontaneous
  Country: US (occurrence: US)
  Receive Date: 20230410
  Receipt Date: 20230507
  Transmission Date: 20230721
  Serious: Yes (Hospitalization, Other)
  Sender: FDA-Public Use
  Company Number: None

PATIENT
  Age: 29 Year
  Sex: Male
  Weight: 81.9 kg

DRUGS (19)
  1. PREDNISOLONE [Suspect]
     Active Substance: PREDNISOLONE
     Indication: Angioedema
     Dosage: 40 MILLIGRAM
     Route: 065
     Dates: start: 20211003, end: 20211004
  2. PREDNISOLONE [Suspect]
     Active Substance: PREDNISOLONE
     Indication: Swelling face
     Dosage: UNK, HIGH-DOSE
     Route: 065
     Dates: start: 20211014
  3. PREDNISOLONE [Suspect]
     Active Substance: PREDNISOLONE
     Dosage: UNK, HIGH-DOSE
     Route: 065
  4. DEXAMETHASONE [Suspect]
     Active Substance: DEXAMETHASONE
     Indication: Peritonsillar abscess
     Dosage: 10 MILLIGRAM, TOTAL, ONCE, 1 DOSE, AT 05:00 (DECADRON 10MG)
     Route: 042
     Dates: start: 20210911, end: 20210911
  5. DEXAMETHASONE [Suspect]
     Active Substance: DEXAMETHASONE
     Indication: Tonsillar exudate
     Dosage: 10 MILLIGRAM, DEXAMETHASONE SODIUM PHOSPHATE (PF) 10 MG INJECTION
     Route: 065
     Dates: start: 20210911, end: 20210911
  6. DEXAMETHASONE [Suspect]
     Active Substance: DEXAMETHASONE
     Indication: Angioedema
  7. METHYLPREDNISOLONE [Suspect]
     Active Substance: METHYLPREDNISOLONE
     Indication: Evidence based treatment
     Dosage: 40 MILLIGRAM, BID, 12 HOUR, DURATION OF DRUG ADMINISTRATION: 3.5 DAYS
     Route: 042
     Dates: start: 20210930, end: 20211002
  8. METHYLPREDNISOLONE [Suspect]
     Active Substance: METHYLPREDNISOLONE
     Indication: Angioedema
     Dosage: 125 MILLIGRAM, TOTAL, INJECTION, ONCE, 1 DOSE, AT 1330 ( (SOLU-MEDROL))
     Route: 042
     Dates: start: 20211014, end: 20211014
  9. METHYLPREDNISOLONE [Suspect]
     Active Substance: METHYLPREDNISOLONE
     Indication: Swelling face
     Dosage: 125 MILLIGRAM, INJECTION (1 DOSAGE FORM) (STRENGTH 125 MG)
     Route: 065
     Dates: start: 20211014
  10. EPINEPHRINE [Concomitant]
     Active Substance: EPINEPHRINE
     Indication: Evidence based treatment
     Dosage: 1 DOSAGE FORM, TOTAL
     Route: 030
     Dates: start: 2021, end: 2021
  11. EPINEPHRINE [Concomitant]
     Active Substance: EPINEPHRINE
     Dosage: UNK
     Route: 058
     Dates: start: 2021
  12. DIPHENHYDRAMINE [Concomitant]
     Active Substance: DIPHENHYDRAMINE
     Indication: Evidence based treatment
     Dosage: 1 DOSAGE FORM, TOTAL
     Route: 065
     Dates: start: 2021
  13. FAMOTIDINE [Concomitant]
     Active Substance: FAMOTIDINE
     Indication: Evidence based treatment
     Dosage: 1 DOSAGE FORM, TOTAL
     Route: 065
     Dates: start: 2021
  14. CLINDAMYCIN [Concomitant]
     Active Substance: CLINDAMYCIN
     Indication: Tonsillar exudate
     Dosage: UNK
     Route: 065
     Dates: start: 202109
  15. CLINDAMYCIN [Concomitant]
     Active Substance: CLINDAMYCIN
     Indication: Peritonsillar abscess
  16. CLINDAMYCIN [Concomitant]
     Active Substance: CLINDAMYCIN
     Indication: Angioedema
  17. SULFAMETHOXAZOLE AND TRIMETHOPRIM [Concomitant]
     Active Substance: SULFAMETHOXAZOLE\TRIMETHOPRIM
     Indication: Antibiotic prophylaxis
     Dosage: UNK
     Route: 065
  18. BICTEGRAVIR\EMTRICITABINE\TENOFOVIR ALAFENAMIDE [Concomitant]
     Active Substance: BICTEGRAVIR\EMTRICITABINE\TENOFOVIR ALAFENAMIDE
     Indication: HIV infection
     Dosage: UNK
     Route: 065
     Dates: start: 2021
  19. BICTEGRAVIR\EMTRICITABINE\TENOFOVIR ALAFENAMIDE [Concomitant]
     Active Substance: BICTEGRAVIR\EMTRICITABINE\TENOFOVIR ALAFENAMIDE
     Indication: Antiretroviral therapy

REACTIONS (3)
  - Kaposi^s sarcoma [Unknown]
  - Condition aggravated [Unknown]
  - Metastasis [Unknown]
